FAERS Safety Report 4938243-0 (Version None)
Quarter: 2006Q1

REPORT INFORMATION
  Report Type: 
  Country: None (occurrence: None)
  Receive Date: 20060308
  Receipt Date: 20060308
  Transmission Date: 20060701
  Serious: Yes (Other)
  Sender: FDA-Public Use
  Company Number: None

PATIENT
  Age: 59 Year
  Sex: Male

DRUGS (1)
  1. INVANZ [Suspect]
     Indication: ARTHRITIS INFECTIVE
     Dosage: 1 GM Q24H IV
     Route: 042
     Dates: start: 20060210, end: 20060307

REACTIONS (1)
  - VISION BLURRED [None]
